FAERS Safety Report 7305910-3 (Version None)
Quarter: 2011Q1

REPORT INFORMATION
  Report Type: 
  Country: None (occurrence: None)
  Receive Date: 20110222
  Receipt Date: 20110218
  Transmission Date: 20110831
  Serious: Yes (Death, Hospitalization)
  Sender: FDA-Public Use
  Company Number: JP-PFIZER INC-2010140343

PATIENT
  Age: 59 Year
  Sex: Male
  Weight: 43 kg

DRUGS (11)
  1. ITRIZOLE [Concomitant]
     Dosage: 20 MG, 2X/DAY
     Route: 048
     Dates: start: 20100413, end: 20100704
  2. PARIET [Concomitant]
     Dosage: 10 MG, 1X/DAY
     Route: 048
     Dates: start: 20100401, end: 20100704
  3. RIMACTANE [Concomitant]
     Dosage: 150 MG, 1X/DAY
     Route: 048
     Dates: start: 20100331, end: 20100704
  4. ESANBUTOL [Concomitant]
     Dosage: 500 MG, 2X/DAY
     Route: 048
     Dates: start: 20100331, end: 20100704
  5. MUCODYNE [Concomitant]
     Dosage: 500 MG, 3X/DAY
     Route: 048
     Dates: start: 20100316, end: 20100704
  6. BUCILLAMINE [Suspect]
     Dosage: 100 MG, 2X/DAY
     Route: 048
     Dates: start: 20050819, end: 20100704
  7. PYDOXAL [Concomitant]
     Dosage: 30 MG, 2X/DAY
     Route: 048
     Dates: start: 20100331, end: 20100704
  8. CYTOTEC [Suspect]
     Dosage: 200 UG, 4X/DAY
     Route: 048
     Dates: start: 20100414, end: 20100704
  9. CLARITHROMYCIN [Suspect]
     Dosage: 200 MG, 2X/DAY
     Route: 048
     Dates: start: 20100419, end: 20100704
  10. ISCOTIN [Concomitant]
     Dosage: 200 MG, 2X/DAY
     Route: 048
     Dates: start: 20100331, end: 20100704
  11. HUSCODE [Concomitant]
     Dosage: 3 ML, 3X/DAY
     Route: 048
     Dates: start: 20100316, end: 20100704

REACTIONS (1)
  - INTERSTITIAL LUNG DISEASE [None]
